FAERS Safety Report 23351781 (Version 2)
Quarter: 2024Q1

REPORT INFORMATION
  Report Type: Spontaneous
  Country: CN (occurrence: CN)
  Receive Date: 20231229
  Receipt Date: 20240109
  Transmission Date: 20240410
  Serious: Yes (Hospitalization)
  Sender: FDA-Public Use
  Company Number: CN-002147023-NVSC2023CN275247

PATIENT
  Age: 72 Year
  Sex: Female
  Weight: 52 kg

DRUGS (1)
  1. CARBAMAZEPINE [Suspect]
     Active Substance: CARBAMAZEPINE
     Indication: Trigeminal neuralgia
     Dosage: 200 MG, BID
     Route: 048
     Dates: start: 20231208, end: 20231218

REACTIONS (10)
  - Dermatitis allergic [Recovering/Resolving]
  - Abdominal pain [Unknown]
  - Chest discomfort [Unknown]
  - Dyspnoea [Unknown]
  - Pyrexia [Unknown]
  - Rash [Recovering/Resolving]
  - Pruritus [Recovering/Resolving]
  - Condition aggravated [Recovering/Resolving]
  - Swelling face [Unknown]
  - Pigmentation disorder [Unknown]

NARRATIVE: CASE EVENT DATE: 20231213
